FAERS Safety Report 22693086 (Version 2)
Quarter: 2024Q3

REPORT INFORMATION
  Report Type: Spontaneous
  Country: US (occurrence: US)
  Receive Date: 20230711
  Receipt Date: 20240722
  Transmission Date: 20241017
  Serious: No
  Sender: ASTELLAS
  Company Number: US-ASTELLAS-2023US018138

PATIENT

DRUGS (1)
  1. MYRBETRIQ [Suspect]
     Active Substance: MIRABEGRON
     Indication: Cystitis interstitial
     Dosage: UNK, UNKNOWN FREQ.
     Route: 065

REACTIONS (5)
  - Insomnia [Unknown]
  - Nocturia [Unknown]
  - Drug effective for unapproved indication [Unknown]
  - Product availability issue [Unknown]
  - Inability to afford medication [Unknown]
